FAERS Safety Report 6108310-7 (Version None)
Quarter: 2009Q1

REPORT INFORMATION
  Report Type: 
  Country: None (occurrence: None)
  Receive Date: 20090309
  Receipt Date: 20090223
  Transmission Date: 20090719
  Serious: Yes (Hospitalization)
  Sender: FDA-Public Use
  Company Number: GB-ROCHE-616545

PATIENT
  Sex: Female

DRUGS (3)
  1. CAPECITABINE [Suspect]
     Indication: BREAST CANCER
     Dosage: TREATMENT CYCLES: 1, DAY ONE OF LAST CHEMO PRIOR TO SAE: 30 JAN 2009
     Route: 065
     Dates: start: 20081117
  2. EPIRUBICIN [Suspect]
     Indication: BREAST CANCER
     Dosage: TREATMENT CYCLES: 4, LAST CHEMO CYCLE PRIOR TO SAE: 30 JAN 2009
     Route: 065
     Dates: start: 20081117
  3. NEULASTA [Suspect]
     Indication: BREAST CANCER
     Dosage: TREATMENT CYCLES: 4, LAST CHEMO CYCLE PRIOR TO SAE: 30 JAN 2009
     Route: 065
     Dates: start: 20081117

REACTIONS (1)
  - FACIAL PALSY [None]
